FAERS Safety Report 4816763-7 (Version None)
Quarter: 2005Q4

REPORT INFORMATION
  Report Type: 
  Country: None (occurrence: None)
  Receive Date: 20051028
  Receipt Date: 20051019
  Transmission Date: 20060501
  Serious: Yes (Hospitalization)
  Sender: FDA-Public Use
  Company Number: 2005143769

PATIENT
  Sex: Female
  Weight: 72.5755 kg

DRUGS (17)
  1. BEXTRA [Suspect]
     Indication: MULTIPLE SCLEROSIS
     Dosage: 20 MG (10 MG, 2 IN 1 D), ORAL
     Route: 048
  2. EFFEXOR (VENLAFAXINE HYDROCHLRIDE) [Concomitant]
  3. LEXAPRO [Concomitant]
  4. BACLOFEN [Concomitant]
  5. LISINOPRIL [Concomitant]
  6. SOMA [Concomitant]
  7. SKELAXIN [Concomitant]
  8. NEURONTIN [Concomitant]
  9. OXYCONTIN [Concomitant]
  10. HYDROXYZINE [Concomitant]
  11. PREMARIN [Concomitant]
  12. DEMEROL [Concomitant]
  13. ZYRTEC [Concomitant]
  14. AMOXIL [Concomitant]
  15. ANTIBIOTICS (ANTIBIOTICS) [Concomitant]
  16. ANALGESICS (ANALGESICS) [Concomitant]
  17. MUSCLE RELAXANTS (MUSCLE RELAXANTS) [Concomitant]

REACTIONS (7)
  - ARTHRITIS [None]
  - BREAST COSMETIC SURGERY [None]
  - BUNION [None]
  - CONDITION AGGRAVATED [None]
  - JOINT DISLOCATION [None]
  - TREATMENT NONCOMPLIANCE [None]
  - WEIGHT INCREASED [None]
